FAERS Safety Report 20175108 (Version 2)
Quarter: 2021Q4

REPORT INFORMATION
  Report Type: Spontaneous
  Country: IR (occurrence: IR)
  Receive Date: 20211213
  Receipt Date: 20211229
  Transmission Date: 20220303
  Serious: Yes (Other)
  Sender: FDA-Public Use
  Company Number: IR-ASTELLAS-2021US047360

PATIENT
  Age: 53 Year
  Sex: Female
  Weight: 54 kg

DRUGS (1)
  1. VESICARE [Suspect]
     Active Substance: SOLIFENACIN SUCCINATE
     Indication: Hypertonic bladder
     Route: 048
     Dates: start: 202102

REACTIONS (1)
  - Macule [Recovering/Resolving]

NARRATIVE: CASE EVENT DATE: 20210901
